FAERS Safety Report 8333037-0 (Version None)
Quarter: 2012Q2

REPORT INFORMATION
  Report Type: 
  Country: None (occurrence: None)
  Receive Date: 20120503
  Receipt Date: 20120423
  Transmission Date: 20120825
  Serious: Yes (Hospitalization, Other)
  Sender: FDA-Public Use
  Company Number: BR-BRISTOL-MYERS SQUIBB COMPANY-16544207

PATIENT
  Age: 31 Year
  Sex: Male
  Weight: 95 kg

DRUGS (1)
  1. VEPESID [Suspect]
     Indication: HODGKIN'S DISEASE
     Route: 048
     Dates: start: 20110101

REACTIONS (4)
  - NEOPLASM MALIGNANT [None]
  - PULMONARY EMBOLISM [None]
  - INCORRECT STORAGE OF DRUG [None]
  - THROMBOSIS [None]
